FAERS Safety Report 5497502-6 (Version None)
Quarter: 2007Q4

REPORT INFORMATION
  Report Type: 
  Country: None (occurrence: None)
  Receive Date: 20071025
  Receipt Date: 20061128
  Transmission Date: 20080405
  Serious: Yes (Other)
  Sender: FDA-Public Use
  Company Number: A0628996A

PATIENT
  Age: 80 Year
  Sex: Female

DRUGS (6)
  1. ADVAIR DISKUS 100/50 [Suspect]
     Indication: ASTHMA
     Dosage: 1PUFF TWICE PER DAY
     Route: 055
  2. GLIBURIDE [Concomitant]
  3. COUMADIN [Concomitant]
  4. ROSUVASTATIN [Concomitant]
  5. POTASSIUM CHLORIDE [Concomitant]
  6. COMBIVENT [Concomitant]

REACTIONS (2)
  - ASTHMA [None]
  - THERAPEUTIC RESPONSE DECREASED [None]
